FAERS Safety Report 5252490-2 (Version None)
Quarter: 2007Q1

REPORT INFORMATION
  Report Type: 
  Country: None (occurrence: None)
  Receive Date: 20070301
  Receipt Date: 20061215
  Transmission Date: 20070707
  Serious: Yes (Other)
  Sender: FDA-Public Use
  Company Number: US-BRISTOL-MYERS SQUIBB COMPANY-13616099

PATIENT
  Sex: Female
  Weight: 70 kg

DRUGS (13)
  1. CETUXIMAB [Suspect]
     Indication: NEOPLASM MALIGNANT
     Route: 041
     Dates: start: 20060928, end: 20060928
  2. PERCOCET TABS 5 MG/325 MG [Concomitant]
  3. MORPHINE SULFATE [Concomitant]
     Indication: PAIN
     Route: 048
  4. PREMARIN [Concomitant]
  5. LASIX [Concomitant]
  6. COREG [Concomitant]
  7. LISINOPRIL [Concomitant]
  8. DIGOXIN [Concomitant]
  9. KLOR-CON [Concomitant]
  10. ASCORBIC ACID [Concomitant]
  11. MULTI-VITAMIN [Concomitant]
  12. DECADRON [Concomitant]
     Dates: start: 20060927
  13. AMBIEN [Concomitant]

REACTIONS (3)
  - DRY SKIN [None]
  - RASH [None]
  - SKIN FISSURES [None]
